FAERS Safety Report 18863973 (Version 11)
Quarter: 2023Q2

REPORT INFORMATION
  Report Type: Report from Study
  Country: US (occurrence: US)
  Receive Date: 20210209
  Receipt Date: 20230607
  Transmission Date: 20230721
  Serious: Yes (Other)
  Sender: FDA-Public Use
  Company Number: US-NOVARTISPH-NVSC2021US023255

PATIENT
  Sex: Female

DRUGS (2)
  1. OMNITROPE [Suspect]
     Active Substance: SOMATROPIN
     Indication: Product used for unknown indication
     Dosage: 10 MG, QD
     Route: 058
     Dates: start: 20210408, end: 20221019
  2. OMNITROPE [Suspect]
     Active Substance: SOMATROPIN
     Dosage: 10 MG, QD
     Route: 030

REACTIONS (11)
  - Mental impairment [Unknown]
  - Alopecia [Unknown]
  - Disturbance in attention [Unknown]
  - Fall [Unknown]
  - Pain [Unknown]
  - Onychoclasis [Unknown]
  - Asthenia [Unknown]
  - Gait disturbance [Unknown]
  - Headache [Unknown]
  - Device malfunction [Unknown]
  - Product dose omission issue [Unknown]
